FAERS Safety Report 8603949 (Version 2)
Quarter: 2013Q3

REPORT INFORMATION
  Report Type: Spontaneous
  Country: US (occurrence: US)
  Receive Date: 20120608
  Receipt Date: 20130703
  Transmission Date: 20140515
  Serious: Yes (Hospitalization)
  Sender: FDA-Public Use
  Company Number: US-ASTRAZENECA-2012SE34971

PATIENT
  Age: 34 Year
  Sex: Female

DRUGS (18)
  1. NEXIUM [Suspect]
     Indication: GASTROINTESTINAL DISORDER
     Route: 048
     Dates: start: 2004
  2. PEPCID [Concomitant]
  3. ZANAX [Concomitant]
     Indication: ANXIETY
  4. HYDROCHLOROTHIAZIDE [Concomitant]
     Indication: BLOOD PRESSURE ABNORMAL
     Route: 048
     Dates: start: 20130518
  5. HYDROCODONE [Concomitant]
  6. SALSALATE [Concomitant]
     Dates: start: 20130520
  7. SINGULAIR [Concomitant]
     Dates: start: 20121119
  8. HYDROXYZINE PAM [Concomitant]
     Route: 048
     Dates: start: 20130330
  9. IBUPROFEN [Concomitant]
     Route: 048
     Dates: start: 20120810
  10. LORATADINE [Concomitant]
     Dates: start: 20121119
  11. SUCRALFATE [Concomitant]
     Dates: start: 20120713
  12. SULPHAMETHOXAZOLE TMP [Concomitant]
     Route: 048
     Dates: start: 20120710
  13. LEVETIRACETAM [Concomitant]
     Route: 048
     Dates: start: 20111221
  14. IMITREX [Concomitant]
     Indication: MIGRAINE
     Dosage: 100MG IF NEEDED
     Dates: start: 20111221
  15. TOPIRAMATE [Concomitant]
     Indication: MIGRAINE
     Route: 048
     Dates: start: 20111219
  16. TOPIRAMATE [Concomitant]
     Indication: HEADACHE
     Route: 048
     Dates: start: 20111219
  17. AMLODIPINE BESYLATE [Concomitant]
     Route: 048
     Dates: start: 20111123
  18. GABAPENTIN [Concomitant]
     Route: 048
     Dates: start: 20110914

REACTIONS (12)
  - Uterine disorder [Unknown]
  - Osteoporosis [Unknown]
  - Multiple fractures [Unknown]
  - Knee deformity [Unknown]
  - Rheumatoid arthritis [Unknown]
  - Migraine [Unknown]
  - Ulcer [Unknown]
  - General physical health deterioration [Unknown]
  - Angina pectoris [Unknown]
  - Bone disorder [Unknown]
  - Peripheral vascular disorder [Unknown]
  - Arthralgia [Unknown]
